FAERS Safety Report 5953245-3 (Version None)
Quarter: 2008Q4

REPORT INFORMATION
  Report Type: 
  Country: None (occurrence: None)
  Receive Date: 20081114
  Receipt Date: 20081110
  Transmission Date: 20090506
  Serious: Yes (Death, Hospitalization)
  Sender: FDA-Public Use
  Company Number: US-ROCHE-592807

PATIENT
  Sex: Male
  Weight: 68 kg

DRUGS (2)
  1. CAPECITABINE [Suspect]
     Dosage: DOSAGE: 8 TABLETS DAILY
     Route: 065
     Dates: start: 20080918
  2. TARCEVA [Concomitant]

REACTIONS (2)
  - DEATH [None]
  - DIARRHOEA [None]
